FAERS Safety Report 17049096 (Version 1)
Quarter: 2019Q4

REPORT INFORMATION
  Report Type: Spontaneous
  Country: US (occurrence: US)
  Receive Date: 20191021
  Receipt Date: 20191021
  Transmission Date: 20200122
  Serious: No
  Sender: FDA-Public Use
  Company Number: None

PATIENT
  Sex: Male

DRUGS (1)
  1. PIPERCACILLIN/TAZOBACTAM 40.5 (36-4.5) GM WG CRITICAL CARE [Suspect]
     Active Substance: PIPERACILLIN SODIUM\TAZOBACTAM SODIUM
     Indication: MASTOIDITIS
     Route: 042
     Dates: start: 20190117

REACTIONS (1)
  - Rash [None]
